FAERS Safety Report 9769208 (Version 3)
Quarter: 2014Q2

REPORT INFORMATION
  Report Type: Spontaneous
  Country: US (occurrence: US)
  Receive Date: 20131218
  Receipt Date: 20140422
  Transmission Date: 20141212
  Serious: Yes (Hospitalization, Other)
  Sender: FDA-Public Use
  Company Number: US-BAYER-2013-154547

PATIENT
  Age: 33 Year
  Sex: Female
  Weight: 61.22 kg

DRUGS (3)
  1. MIRENA [Suspect]
     Indication: CONTRACEPTION
     Dosage: 20 MCG/24HR, CONT
     Route: 015
     Dates: start: 20090917, end: 20130313
  2. ZOLOFT [Concomitant]
     Indication: HEADACHE
     Dosage: 100 MG, UNK
     Route: 048
  3. POLYTRIM [Concomitant]
     Dosage: 10000-0.1 UNIT/ML ONE DROP EACH EYE, FOUR TIMES DAILY FOR 5 DAYS
     Route: 047

REACTIONS (9)
  - Injury [None]
  - Uterine perforation [None]
  - Pregnancy with contraceptive device [None]
  - Drug ineffective [None]
  - Premature delivery [None]
  - Subchorionic haemorrhage [None]
  - Pain [None]
  - Emotional distress [None]
  - Device dislocation [None]
